FAERS Safety Report 8317812 (Version 3)
Quarter: 2015Q1

REPORT INFORMATION
  Report Type: Spontaneous
  Country: US (occurrence: US)
  Receive Date: 20120102
  Receipt Date: 20150302
  Transmission Date: 20150721
  Serious: Yes (Other)
  Sender: FDA-Public Use
  Company Number: US-ROCHE-784601

PATIENT
  Age: 29 Year
  Sex: Female
  Weight: 72.64 kg

DRUGS (1)
  1. ACCUTANE [Suspect]
     Active Substance: ISOTRETINOIN
     Indication: ACNE
     Route: 065
     Dates: start: 20000505, end: 20000901

REACTIONS (5)
  - Intestinal obstruction [Unknown]
  - Crohn^s disease [Unknown]
  - Fistula [Unknown]
  - Inflammatory bowel disease [Unknown]
  - Depression [Unknown]

NARRATIVE: CASE EVENT DATE: 2001
